FAERS Safety Report 4657881-6 (Version None)
Quarter: 2005Q2

REPORT INFORMATION
  Report Type: 
  Country: None (occurrence: None)
  Receive Date: 20050510
  Receipt Date: 20031015
  Transmission Date: 20051028
  Serious: Yes (Death, Hospitalization)
  Sender: FDA-Public Use
  Company Number: JP-NOVOPROD-233436

PATIENT
  Age: 73 Year
  Sex: Male
  Weight: 37 kg

DRUGS (7)
  1. NOVOSEVEN [Suspect]
     Indication: ACQUIRED HAEMOPHILIA
     Dosage: IN TOTAL 4.8 MG
     Route: 042
     Dates: start: 20030916
  2. NOVOSEVEN [Suspect]
     Dosage: IN TOTAL 4.8 MG
     Dates: start: 20030917
  3. PANTOSIN [Concomitant]
     Dosage: 400 MG, UNK
     Route: 042
     Dates: start: 20030916, end: 20030917
  4. PREDNISOLONE [Concomitant]
     Dosage: 30 MG, UNK
     Route: 048
     Dates: start: 20030626
  5. AMINOTRIPA 2 [Concomitant]
     Dosage: 900 ML, UNK
     Route: 042
     Dates: start: 20030907
  6. ZANTAC [Concomitant]
     Dosage: 1 DF, UNK
     Route: 042
  7. MAXIPIME [Concomitant]
     Dosage: 1 UNK, UNK
     Route: 042
     Dates: start: 20030916

REACTIONS (4)
  - CONCOMITANT DISEASE PROGRESSION [None]
  - RESPIRATORY ARREST [None]
  - RESPIRATORY DISORDER [None]
  - THIRST [None]
